FAERS Safety Report 7473240-5 (Version None)
Quarter: 2011Q2

REPORT INFORMATION
  Report Type: 
  Country: None (occurrence: None)
  Receive Date: 20110511
  Receipt Date: 20110505
  Transmission Date: 20111010
  Serious: Yes (Other)
  Sender: FDA-Public Use
  Company Number: B0718126A

PATIENT
  Sex: Female

DRUGS (2)
  1. LAPATINIB [Suspect]
     Dosage: 1250MG PER DAY
     Route: 065
  2. CAPECITABINE [Suspect]
     Route: 065

REACTIONS (1)
  - CEREBROVASCULAR DISORDER [None]
